FAERS Safety Report 19865339 (Version 2)
Quarter: 2021Q4

REPORT INFORMATION
  Report Type: Spontaneous
  Country: CZ (occurrence: CZ)
  Receive Date: 20210921
  Receipt Date: 20211116
  Transmission Date: 20220303
  Serious: Yes (Other)
  Sender: FDA-Public Use
  Company Number: CZ-OTSUKA-2021_032255

PATIENT
  Sex: Male

DRUGS (13)
  1. TOLVAPTAN [Suspect]
     Active Substance: TOLVAPTAN
     Indication: Product used for unknown indication
     Dosage: UNK
     Route: 065
  2. LOZAP [LOSARTAN POTASSIUM] [Concomitant]
     Indication: Product used for unknown indication
     Dosage: 100 MG, QD
     Route: 065
  3. HIPRES [AMLODIPINE MALEATE] [Concomitant]
     Indication: Product used for unknown indication
     Dosage: 5 MG, 1-0-1/2
  4. HIPRES [AMLODIPINE MALEATE] [Concomitant]
     Dosage: 5 MG, BID
     Route: 065
  5. ZOXON [DOXAZOSIN] [Concomitant]
     Indication: Product used for unknown indication
     Dosage: 4 MG TBL 1/2-0-0
     Route: 065
  6. ZOXON [DOXAZOSIN] [Concomitant]
     Dosage: 4 MG, BID
     Route: 065
  7. ATORVASTATIN CALCIUM [Concomitant]
     Active Substance: ATORVASTATIN CALCIUM
     Indication: Product used for unknown indication
     Dosage: 20 MG, QD
     Route: 065
  8. CHOLECALCIFEROL [Concomitant]
     Active Substance: CHOLECALCIFEROL
     Indication: Product used for unknown indication
     Dosage: 0,5 MG/ML POR  (CHOLECALCIFEROL)14 DROPS 1X WEEKLY
     Route: 065
  9. SODIUM BICARBONATE [Concomitant]
     Active Substance: SODIUM BICARBONATE
     Indication: Product used for unknown indication
     Dosage: 1 G, TID
     Route: 065
  10. SODIUM CHLORIDE [Concomitant]
     Active Substance: SODIUM CHLORIDE
     Indication: Product used for unknown indication
     Dosage: 1G, 2-2-2
  11. FERROUS SULFATE\FOLIC ACID [Concomitant]
     Active Substance: FERROUS SULFATE\FOLIC ACID
     Indication: Product used for unknown indication
     Dosage: 247,25 MG/0,35MG TBL (IRON) 1X1
     Route: 065
  12. MIRCERA [Concomitant]
     Active Substance: METHOXY POLYETHYLENE GLYCOL-EPOETIN BETA
     Indication: Product used for unknown indication
     Dosage: 50MCG/0,3ML INJ A 3WEEKS
     Route: 058
  13. ROCALTROL [Concomitant]
     Active Substance: CALCITRIOL
     Indication: Product used for unknown indication
     Dosage: 0,25 MCG CPS (CALCITRIOL)  3XWEEKLY
     Route: 065

REACTIONS (5)
  - End stage renal disease [Unknown]
  - Hepatic cyst [Unknown]
  - Blood urea increased [Unknown]
  - Glomerular filtration rate decreased [Unknown]
  - Blood creatinine increased [Unknown]

NARRATIVE: CASE EVENT DATE: 20210101
